FAERS Safety Report 13609405 (Version 2)
Quarter: 2017Q2

REPORT INFORMATION
  Report Type: Spontaneous
  Country: US (occurrence: US)
  Receive Date: 20170602
  Receipt Date: 20170605
  Transmission Date: 20170830
  Serious: No
  Sender: FDA-Public Use
  Company Number: US-PFIZER INC-2877266

PATIENT
  Age: 80 Year
  Sex: Female
  Weight: 56.7 kg

DRUGS (1)
  1. KETOROLAC TROMETHAMINE. [Suspect]
     Active Substance: KETOROLAC TROMETHAMINE
     Indication: PRODUCT USED FOR UNKNOWN INDICATION
     Dosage: UNK
     Dates: start: 20141201

REACTIONS (17)
  - Muscle spasms [Unknown]
  - Chest pain [Unknown]
  - Pain in extremity [Unknown]
  - Nausea [Unknown]
  - Anaemia [Unknown]
  - Product quality issue [Unknown]
  - Weight decreased [Unknown]
  - Poor quality drug administered [Unknown]
  - Burning sensation [Unknown]
  - Inflammation [Unknown]
  - Eating disorder [Unknown]
  - Feeling abnormal [Unknown]
  - Nervousness [Unknown]
  - Back pain [Unknown]
  - Impaired work ability [Unknown]
  - Dizziness [Unknown]
  - Vision blurred [Unknown]
